FAERS Safety Report 16172430 (Version 2)
Quarter: 2019Q2

REPORT INFORMATION
  Report Type: Spontaneous
  Country: US (occurrence: US)
  Receive Date: 20190409
  Receipt Date: 20190626
  Transmission Date: 20190711
  Serious: Yes (Hospitalization, Other)
  Sender: FDA-Public Use
  Company Number: US-BRISTOL-MYERS SQUIBB COMPANY-BMS-2019-033914

PATIENT
  Sex: Male

DRUGS (1)
  1. ELIQUIS [Suspect]
     Active Substance: APIXABAN
     Indication: DEEP VEIN THROMBOSIS
     Dosage: UNK
     Route: 065
     Dates: start: 201709

REACTIONS (6)
  - Atrial fibrillation [Unknown]
  - Thrombosis [Unknown]
  - Gastrooesophageal reflux disease [Unknown]
  - Product dose omission [Unknown]
  - Pneumonia [Unknown]
  - Contusion [Unknown]
